FAERS Safety Report 6694587-6 (Version None)
Quarter: 2010Q2

REPORT INFORMATION
  Report Type: 
  Country: None (occurrence: None)
  Receive Date: 20100423
  Receipt Date: 20100412
  Transmission Date: 20101027
  Serious: Yes (Other)
  Sender: FDA-Public Use
  Company Number: JP-PFIZER INC-2010046969

PATIENT
  Age: 82 Year
  Sex: Male
  Weight: 75 kg

DRUGS (11)
  1. DISOPYRAMIDE [Suspect]
     Indication: ARRHYTHMIA
     Dosage: 300 MG, UNK
  2. GARENOXACIN [Suspect]
     Indication: PNEUMONIA BACTERIAL
     Dosage: 800 MG, 2X/DAY
     Route: 048
  3. BICALUTAMIDE [Suspect]
     Indication: PROSTATE CANCER
     Dosage: 80 MG, DAILY
  4. SILODOSIN [Suspect]
     Indication: BENIGN PROSTATIC HYPERPLASIA
     Dosage: 8 MG, UNK
  5. AMLODIPINE BESILATE [Concomitant]
     Indication: HYPERTENSION
     Dosage: 5 MG, DAILY
  6. ISOSORBIDE MONONITRATE [Concomitant]
     Indication: ANGINA PECTORIS
     Dosage: 40 MG, DAILY
  7. IMIDAPRIL HYDROCHLORIDE [Concomitant]
     Indication: HYPERTENSION
     Dosage: 5 MG, DAILY
  8. BAKUMONDOUTO [Concomitant]
     Indication: ASTHMA
     Dosage: 9 G, DAILY
  9. PRAVASTATIN SODIUM [Concomitant]
     Indication: HYPERLIPIDAEMIA
     Dosage: 10 MG, DAILY
  10. FLUTOPRAZEPAM [Concomitant]
     Indication: DEPRESSION
     Dosage: 1 MG, DAILY
  11. CEFOZOPRAN [Concomitant]
     Dosage: 1 G, 2X/DAY
     Route: 042

REACTIONS (3)
  - DRUG INTERACTION [None]
  - ELECTROCARDIOGRAM QT PROLONGED [None]
  - TORSADE DE POINTES [None]
